FAERS Safety Report 5332789-1 (Version None)
Quarter: 2007Q2

REPORT INFORMATION
  Report Type: 
  Country: None (occurrence: None)
  Receive Date: 20070518
  Receipt Date: 20070507
  Transmission Date: 20071010
  Serious: Yes (Hospitalization)
  Sender: FDA-Public Use
  Company Number: FABR-11989

PATIENT
  Age: 41 Year
  Sex: Male
  Weight: 65 kg

DRUGS (6)
  1. FABRAZYME [Suspect]
     Indication: FABRY'S DISEASE
     Dosage: 70 MG Q2WKS IV
     Route: 042
     Dates: start: 20030711
  2. AMINEURIN. MFR:  HEXAL [Concomitant]
  3. DELIX. MFR:  HOECHST PHARMACEUTICALS, INCORPORATED [Concomitant]
  4. NOVALMINSULFON. MFR:  METAMIZOL [Concomitant]
  5. TEGRETOL. MFR:  CIBA-GEIGY [Concomitant]
  6. TRAMAGIT. MFR:  KREWEL-WERKE GMBH. KOLN, WERK EITORF [Concomitant]

REACTIONS (2)
  - INTERVERTEBRAL DISC PROTRUSION [None]
  - SCIATICA [None]
